FAERS Safety Report 14963839 (Version 1)
Quarter: 2018Q2

REPORT INFORMATION
  Report Type: Spontaneous
  Country: US (occurrence: US)
  Receive Date: 20180601
  Receipt Date: 20180601
  Transmission Date: 20180711
  Serious: No
  Sender: FDA-Public Use
  Company Number: US-SA-2018SA146854

PATIENT
  Age: 74 Year

DRUGS (1)
  1. PRALUENT [Suspect]
     Active Substance: ALIROCUMAB
     Dosage: 1 ML, QOW
     Route: 058
     Dates: start: 201605, end: 201803

REACTIONS (3)
  - Myalgia [Unknown]
  - Muscular weakness [Unknown]
  - Muscle spasms [Unknown]
